FAERS Safety Report 12889492 (Version 3)
Quarter: 2019Q4

REPORT INFORMATION
  Report Type: Spontaneous
  Country: US (occurrence: US)
  Receive Date: 20161027
  Receipt Date: 20191223
  Transmission Date: 20200122
  Serious: Yes (Other)
  Sender: FDA-Public Use
  Company Number: US-PFIZER INC-2016500866

PATIENT
  Age: 63 Year
  Sex: Male

DRUGS (32)
  1. ATORVASTATIN [Concomitant]
     Active Substance: ATORVASTATIN
     Indication: BLOOD CHOLESTEROL ABNORMAL
     Dosage: UNK
     Dates: start: 2003
  2. LEVITRA [Concomitant]
     Active Substance: VARDENAFIL HYDROCHLORIDE
     Indication: ERECTILE DYSFUNCTION
     Dosage: 10 MG, AS NEEDED
     Dates: start: 20060403, end: 20081003
  3. WARFARIN [Concomitant]
     Active Substance: WARFARIN
     Dosage: HALF TABLET EVERY OTHER 4 DAYS
  4. KETOPROFEN. [Concomitant]
     Active Substance: KETOPROFEN
     Dosage: UNK
  5. CIPROFLOXACIN. [Concomitant]
     Active Substance: CIPROFLOXACIN
     Dosage: UNK
  6. TAMSULOSIN [Concomitant]
     Active Substance: TAMSULOSIN
     Dosage: UNK
  7. CIALIS [Suspect]
     Active Substance: TADALAFIL
     Indication: ERECTILE DYSFUNCTION
     Dosage: 20 MG, AS NEEDED
     Route: 048
     Dates: start: 20081103, end: 20090909
  8. AMLODIPINE [Concomitant]
     Active Substance: AMLODIPINE BESYLATE
     Indication: BLOOD PRESSURE ABNORMAL
     Dosage: 10 MG, 1X/DAY
     Route: 048
     Dates: start: 2003
  9. WARFARIN [Concomitant]
     Active Substance: WARFARIN
     Dosage: 5 MG, ALTERNATE DAY
  10. CLODERM [Concomitant]
     Active Substance: CLOCORTOLONE PIVALATE
     Dosage: UNK
  11. AMPICILLIN [Concomitant]
     Active Substance: AMPICILLIN
     Dosage: UNK
  12. IRBESARTAN. [Concomitant]
     Active Substance: IRBESARTAN
     Indication: BLOOD PRESSURE ABNORMAL
     Dosage: UNK
     Dates: start: 2003
  13. TRAMADOL. [Concomitant]
     Active Substance: TRAMADOL
     Dosage: UNK
     Dates: start: 2012
  14. HYDROCODONE BITARTRATE AND ACETAMINOPHEN [Concomitant]
     Active Substance: ACETAMINOPHEN\HYDROCODONE BITARTRATE
     Dosage: 500, 5/325, 7.5/325 TABLET
  15. DOXYCYCLINE HYCLATE. [Concomitant]
     Active Substance: DOXYCYCLINE HYCLATE
     Dosage: 100 MG, UNK
  16. OXYCODONE WITH APAP [Concomitant]
     Active Substance: ACETAMINOPHEN\OXYCODONE HYDROCHLORIDE
     Dosage: 5/325 MG
  17. ENOXAPARIN [Concomitant]
     Active Substance: ENOXAPARIN
     Dosage: UNK
  18. CIALIS [Suspect]
     Active Substance: TADALAFIL
     Dosage: 20 MG, AS NEEDED
     Route: 048
     Dates: start: 20131203, end: 20131203
  19. WARFARIN [Concomitant]
     Active Substance: WARFARIN
     Dosage: 7.5 X 3/WEEKLY
  20. CARAC [Concomitant]
     Active Substance: FLUOROURACIL
     Dosage: UNK
  21. CYCLOBENZAPRINE. [Concomitant]
     Active Substance: CYCLOBENZAPRINE
     Dosage: 10 MG, UNK
  22. VIAGRA [Suspect]
     Active Substance: SILDENAFIL CITRATE
     Dosage: 100 MG, WEEKLY
     Route: 048
     Dates: start: 20141014, end: 20141114
  23. AVAPRO [Concomitant]
     Active Substance: IRBESARTAN
     Dosage: 300 MG, 1X/DAY
  24. TRAMADOL. [Concomitant]
     Active Substance: TRAMADOL
     Indication: NECK PAIN
     Dosage: 50 MG, 2X/DAY
  25. AZITHROMYCIN ANHYDROUS. [Concomitant]
     Active Substance: AZITHROMYCIN ANHYDROUS
     Dosage: UNK
  26. SULFAMETHOXAZOLE AND TRIMETHOPRIM [Concomitant]
     Active Substance: SULFAMETHOXAZOLE\TRIMETHOPRIM
     Dosage: UNK
  27. TRAMADOL. [Concomitant]
     Active Substance: TRAMADOL
     Dosage: UNK
  28. VIAGRA [Suspect]
     Active Substance: SILDENAFIL CITRATE
     Indication: ERECTILE DYSFUNCTION
     Dosage: 100 MG, AS NEEDED
     Route: 048
     Dates: start: 20090915, end: 20100831
  29. AMLODIPINE [Concomitant]
     Active Substance: AMLODIPINE BESYLATE
     Indication: ANGINA PECTORIS
  30. WARFARIN [Concomitant]
     Active Substance: WARFARIN
     Dosage: 7.5 MG, EVERY MON AND FRI
  31. LIPITOR [Concomitant]
     Active Substance: ATORVASTATIN CALCIUM
     Dosage: 10 MG, 1X/DAY
  32. PREDNISONE. [Concomitant]
     Active Substance: PREDNISONE
     Dosage: UNK

REACTIONS (1)
  - Superficial spreading melanoma stage unspecified [Unknown]

NARRATIVE: CASE EVENT DATE: 20141023
